FAERS Safety Report 7622079-6 (Version None)
Quarter: 2011Q3

REPORT INFORMATION
  Report Type: 
  Country: None (occurrence: None)
  Receive Date: 20110720
  Receipt Date: 20110104
  Transmission Date: 20111222
  Serious: Yes (Life-Threatening, Other)
  Sender: FDA-Public Use
  Company Number: US-BAYER-2011-001532

PATIENT
  Sex: Female

DRUGS (1)
  1. AVELOX [Suspect]
     Indication: SINUSITIS
     Dosage: 400 MG, ONCE
     Dates: start: 20101201, end: 20101201

REACTIONS (5)
  - BLISTER [None]
  - CHEST PAIN [None]
  - GENERALISED ERYTHEMA [None]
  - OTORRHOEA [None]
  - BLOOD PRESSURE INCREASED [None]
